FAERS Safety Report 5064310-X (Version None)
Quarter: 2006Q3

REPORT INFORMATION
  Report Type: 
  Country: None (occurrence: None)
  Receive Date: 20060728
  Receipt Date: 20060623
  Transmission Date: 20061208
  Serious: Yes (Hospitalization)
  Sender: FDA-Public Use
  Company Number: PHHO2006US10317

PATIENT
  Age: 82 Year
  Sex: Male
  Weight: 78.82 kg

DRUGS (19)
  1. FORADIL [Suspect]
     Indication: CHRONIC OBSTRUCTIVE PULMONARY DISEASE
     Dosage: TREATMENT PHASE
     Dates: start: 20060428, end: 20060622
  2. SPIRIVA [Concomitant]
     Indication: CHRONIC OBSTRUCTIVE PULMONARY DISEASE
     Dosage: 18 UG, QD
  3. ASPIRIN [Concomitant]
  4. ENOXAPARIN SODIUM [Concomitant]
  5. FOLIC ACID [Concomitant]
  6. FELODIPINE [Concomitant]
  7. GLYBURIDE [Concomitant]
  8. INSULIN [Concomitant]
  9. IPRATROPIUM BROMIDE [Concomitant]
  10. LEVOTHYROXINE SODIUM [Concomitant]
  11. LOSARTAN POSTASSIUM [Concomitant]
  12. METHYLPREDNISOLONE [Concomitant]
  13. MOXIFLOXACIN HCL [Concomitant]
  14. OMEPRAZOLE [Concomitant]
  15. POTASSIUM CHLORIDE [Concomitant]
  16. SIMVASTATIN [Concomitant]
  17. LOVENOX [Concomitant]
  18. PREDNISONE TAB [Concomitant]
  19. METHOTREXATE [Concomitant]

REACTIONS (14)
  - ABDOMINAL PAIN UPPER [None]
  - CHEST PAIN [None]
  - CHRONIC OBSTRUCTIVE PULMONARY DISEASE [None]
  - COUGH [None]
  - DYSPNOEA [None]
  - LEUKOCYTOSIS [None]
  - NAUSEA [None]
  - PLEURAL EFFUSION [None]
  - PNEUMONIA [None]
  - PYREXIA [None]
  - RESPIRATORY GAS EXCHANGE DISORDER [None]
  - TREMOR [None]
  - VOMITING [None]
  - WHEEZING [None]
